FAERS Safety Report 12010672 (Version 1)
Quarter: 2016Q1

REPORT INFORMATION
  Report Type: Spontaneous
  Country: CH (occurrence: DE)
  Receive Date: 20160205
  Receipt Date: 20160205
  Transmission Date: 20160526
  Serious: Yes (Other)
  Sender: FDA-Public Use
  Company Number: CH-LPDUSPRD-20160108

PATIENT
  Age: 73 Year
  Sex: Male
  Weight: 96 kg

DRUGS (16)
  1. FERINJECT [Suspect]
     Active Substance: FERRIC CARBOXYMALTOSE
     Dosage: 500 MG, 1 IN 1 TOTAL
     Route: 041
     Dates: start: 20151201, end: 20151201
  2. ARCOXIA [Concomitant]
     Active Substance: ETORICOXIB
     Dosage: 60 MG, 1 IN 1 D
     Route: 048
     Dates: start: 20150505
  3. FERRO-SANDOL DUODENAL [Concomitant]
     Dosage: 100 MG, 1 IN 1 D
     Route: 048
     Dates: start: 20150512
  4. NITROFURANTOIN. [Concomitant]
     Active Substance: NITROFURANTOIN
     Dosage: 200 MG (100 MG, 2 IN 1 D)
     Route: 065
     Dates: start: 20150823, end: 20150921
  5. ALLOPURINOL. [Concomitant]
     Active Substance: ALLOPURINOL
     Dosage: 100 MG, 1 IN 1 D
     Route: 048
     Dates: start: 20150627
  6. NOVAMINSULFONE [Concomitant]
     Dosage: 80 GTT (40 GTT, 2 IN 1 D)
     Route: 048
     Dates: start: 20150609
  7. FORMOTEROL [Concomitant]
     Active Substance: FORMOTEROL
     Dosage: AS REQUIRED
     Route: 048
     Dates: start: 201404
  8. RAMIPRIL. [Concomitant]
     Active Substance: RAMIPRIL
     Dosage: 5 MG, 1 IN 1 D
     Route: 048
     Dates: start: 201404
  9. AMLODIPINE [Concomitant]
     Active Substance: AMLODIPINE BESYLATE
     Dosage: 10 MG (5 MG, 2 IN 1 D)
     Route: 048
     Dates: start: 201404
  10. FRAXIPARINE [Concomitant]
     Active Substance: NADROPARIN CALCIUM
     Dosage: 0.8 MG (0.4 MG, 2 IN 1 D)
     Route: 058
     Dates: start: 20150823
  11. METAMIZOLE [Concomitant]
     Active Substance: METAMIZOLE
     Dosage: AS REQUIRED
     Route: 048
     Dates: start: 201404
  12. BELOC ZOK (METOPROLOL SUCCINATE) [Concomitant]
     Active Substance: METOPROLOL SUCCINATE
     Dosage: 95 MG, 1/2 IN AM AND 1 IN PM
     Route: 048
     Dates: start: 20150701
  13. BOSULIF [Suspect]
     Active Substance: BOSUTINIB MONOHYDRATE
     Dosage: 300 MG
     Route: 048
     Dates: start: 20150823
  14. PANTOPRAZOLE SODIUM SESQUIHYDRATE [Concomitant]
     Active Substance: PANTOPRAZOLE SODIUM
     Dosage: 40 MG, 1 IN 1 D
     Route: 048
     Dates: start: 201404
  15. DOXAZOSIN [Concomitant]
     Active Substance: DOXAZOSIN\DOXAZOSIN MESYLATE
     Dosage: 8 MG (4 MG, 2 IN 1 D)
     Route: 048
     Dates: start: 201404
  16. ARANESP [Concomitant]
     Active Substance: DARBEPOETIN ALFA
     Dosage: 50 MG, 1 IN 1 WEEK
     Route: 058
     Dates: start: 201404

REACTIONS (2)
  - Hypersensitivity [Unknown]
  - Petit mal epilepsy [Unknown]

NARRATIVE: CASE EVENT DATE: 20151201
